FAERS Safety Report 15579992 (Version 1)
Quarter: 2018Q4

REPORT INFORMATION
  Report Type: Spontaneous
  Country: US (occurrence: US)
  Receive Date: 20181102
  Receipt Date: 20181102
  Transmission Date: 20190205
  Serious: Yes (Disabling)
  Sender: FDA-Public Use
  Company Number: None

PATIENT
  Age: 61 Year
  Sex: Female
  Weight: 94.5 kg

DRUGS (3)
  1. BENADRYL [Concomitant]
     Active Substance: DIPHENHYDRAMINE HYDROCHLORIDE
  2. GADOLINIUM [Suspect]
     Active Substance: GADOLINIUM
     Route: 042
  3. TOPROL XL [Concomitant]
     Active Substance: METOPROLOL SUCCINATE

REACTIONS (7)
  - Confusional state [None]
  - Tinnitus [None]
  - Fatigue [None]
  - Post procedural complication [None]
  - Blood pressure fluctuation [None]
  - Burning sensation [None]
  - Feeling abnormal [None]

NARRATIVE: CASE EVENT DATE: 20170712
